FAERS Safety Report 4676173-2 (Version None)
Quarter: 2005Q2

REPORT INFORMATION
  Report Type: 
  Country: None (occurrence: None)
  Receive Date: 20050527
  Receipt Date: 20050411
  Transmission Date: 20051028
  Serious: No
  Sender: FDA-Public Use
  Company Number: US-GLAXOSMITHKLINE-A0553570A

PATIENT
  Sex: Female

DRUGS (8)
  1. WELLBUTRIN XL [Suspect]
     Indication: DEPRESSION
     Dosage: 150MG PER DAY
     Route: 048
     Dates: start: 20050404
  2. SYNTHROID [Concomitant]
  3. PRILOSEC [Concomitant]
  4. TRICOR [Concomitant]
  5. SINGULAIR [Concomitant]
  6. CELEBREX [Concomitant]
  7. NALFON [Concomitant]
  8. GLUCOPHAGE [Concomitant]

REACTIONS (1)
  - ARTHRALGIA [None]
